FAERS Safety Report 9895774 (Version 1)
Quarter: 2014Q1

REPORT INFORMATION
  Report Type: Spontaneous
  Country: US (occurrence: US)
  Receive Date: 20140213
  Receipt Date: 20140213
  Transmission Date: 20141002
  Serious: No
  Sender: FDA-Public Use
  Company Number: US-BRISTOL-MYERS SQUIBB COMPANY-19449727

PATIENT
  Age: 64 Year
  Sex: Female
  Weight: 87.07 kg

DRUGS (11)
  1. ABATACEPT SUBQ INJECTION 125MG/ML [Suspect]
     Dosage: 1DF=125MG/ML
     Route: 058
  2. PREDNISONE [Concomitant]
  3. TRAMADOL HCL [Concomitant]
  4. LISINOPRIL [Concomitant]
  5. LISINOPRIL + HCTZ [Concomitant]
     Dosage: 1DF=10-12.5MG.TAB
  6. FOLIC ACID [Concomitant]
  7. CALCIUM [Concomitant]
     Dosage: 1DF=500 TAB +D MULTI TAB
  8. VITAMIN E [Concomitant]
     Dosage: 1DF=100UNIT
  9. VITAMIN D [Concomitant]
     Dosage: 1DF=1000 UNIT
  10. METHOTREXATE [Concomitant]
     Dosage: INJ
  11. HYDROCORTISONE [Concomitant]
     Dosage: CREAM

REACTIONS (1)
  - Rheumatoid arthritis [Unknown]
